FAERS Safety Report 6420900-0 (Version None)
Quarter: 2009Q4

REPORT INFORMATION
  Report Type: 
  Country: None (occurrence: None)
  Receive Date: 20091028
  Receipt Date: 20091022
  Transmission Date: 20100525
  Serious: Yes (Other)
  Sender: FDA-Public Use
  Company Number: 2009SP029166

PATIENT
  Age: 81 Year
  Sex: Male
  Weight: 95.2554 kg

DRUGS (15)
  1. CLARITIN-D 24 HOUR [Suspect]
     Indication: ASTHMA
     Dosage: 10 MG; ONCE; PO
     Route: 048
     Dates: start: 20091005, end: 20091006
  2. ADVAIR DISKUS 100/50 [Concomitant]
  3. COMBIVENT [Concomitant]
  4. FLONASE [Concomitant]
  5. GUAIFENESIN [Concomitant]
  6. OXYGEN [Concomitant]
  7. MIRAPEX [Concomitant]
  8. LORAZEPAM [Concomitant]
  9. NEURONTIN [Concomitant]
  10. DOXYCYCLINE [Concomitant]
  11. LEVOTHYROXINE SODIUM [Concomitant]
  12. RANITIDINE [Concomitant]
  13. VITAMINS [Concomitant]
  14. ASPIRIN [Concomitant]
  15. MAXZIDE [Concomitant]

REACTIONS (1)
  - DYSURIA [None]
